FAERS Safety Report 17680243 (Version 1)
Quarter: 2020Q2

REPORT INFORMATION
  Report Type: Spontaneous
  Country: US (occurrence: US)
  Receive Date: 20200416
  Receipt Date: 20200416
  Transmission Date: 20200714
  Serious: No
  Sender: FDA-Public Use
  Company Number: None

PATIENT
  Age: 45 Year
  Sex: Female

DRUGS (1)
  1. TALTZ [Suspect]
     Active Substance: IXEKIZUMAB
     Dosage: OTHER
     Route: 058
     Dates: start: 201902

REACTIONS (4)
  - Therapy interrupted [None]
  - Insurance issue [None]
  - Musculoskeletal disorder [None]
  - Condition aggravated [None]

NARRATIVE: CASE EVENT DATE: 20200416
